FAERS Safety Report 16654003 (Version 2)
Quarter: 2020Q3

REPORT INFORMATION
  Report Type: Spontaneous
  Country: PL (occurrence: PL)
  Receive Date: 20190731
  Receipt Date: 20200611
  Transmission Date: 20201104
  Serious: Yes (Hospitalization, Other)
  Sender: FDA-Public Use
  Company Number: PL-SA-2019SA199741

PATIENT

DRUGS (22)
  1. BISOPROLOL SALT NOT SPECIFIED [Suspect]
     Active Substance: BISOPROLOL
  2. OMEPRAZOLE. [Suspect]
     Active Substance: OMEPRAZOLE
  3. LEVOTHYROXINE SODIUM. [Suspect]
     Active Substance: LEVOTHYROXINE SODIUM
     Dosage: UNK UNK, UNK
     Route: 065
  4. IBANDRONIC ACID. [Suspect]
     Active Substance: IBANDRONIC ACID
  5. OMEPRAZOLE. [Suspect]
     Active Substance: OMEPRAZOLE
  6. ALLOPURINOL. [Concomitant]
     Active Substance: ALLOPURINOL
  7. CHOLECALCIFEROL [Concomitant]
     Active Substance: CHOLECALCIFEROL
  8. METHOTREXATE. [Suspect]
     Active Substance: METHOTREXATE
     Dosage: 15 MG, QW DOSE INCREASED
     Dates: end: 201603
  9. INDAPAMIDE. [Suspect]
     Active Substance: INDAPAMIDE
  10. NAPROXEN. [Concomitant]
     Active Substance: NAPROXEN
  11. METHOTREXATE. [Suspect]
     Active Substance: METHOTREXATE
     Indication: ARTHRITIS
     Dosage: 10 MG, QW
     Dates: start: 201509
  12. TRAMADOL HYDROCHLORIDE. [Suspect]
     Active Substance: TRAMADOL HYDROCHLORIDE
     Dosage: UNK, UNK
     Route: 065
  13. CHOLECALCIFEROL [Concomitant]
     Active Substance: CHOLECALCIFEROL
  14. METHYLPREDNISOLONE. [Suspect]
     Active Substance: METHYLPREDNISOLONE
     Indication: ARTHRITIS
     Dosage: SMALL DOSE
     Dates: start: 2016
  15. RAMIPRIL. [Suspect]
     Active Substance: RAMIPRIL
  16. IBANDRONIC ACID. [Suspect]
     Active Substance: IBANDRONIC ACID
     Dosage: UNK
  17. INDAPAMIDE. [Suspect]
     Active Substance: INDAPAMIDE
  18. NAPROXEN. [Concomitant]
     Active Substance: NAPROXEN
  19. PARACETAMOL [Suspect]
     Active Substance: ACETAMINOPHEN
  20. ALLOPURINOL. [Concomitant]
     Active Substance: ALLOPURINOL
  21. PARACETAMOL [Suspect]
     Active Substance: ACETAMINOPHEN
  22. RAMIPRIL. [Suspect]
     Active Substance: RAMIPRIL

REACTIONS (21)
  - Insomnia [Unknown]
  - Renal failure [Unknown]
  - Intentional product misuse [Unknown]
  - Crepitations [Unknown]
  - Cardiac failure [Unknown]
  - Asthenia [Unknown]
  - Hypervolaemia [Unknown]
  - Dry mouth [Unknown]
  - Klebsiella infection [Recovered/Resolved]
  - Serratia infection [Recovered/Resolved]
  - Pain [Recovered/Resolved]
  - Peripheral swelling [Unknown]
  - Pain in extremity [Recovered/Resolved]
  - Dyspnoea [Unknown]
  - Orthopnoea [Unknown]
  - Hyponatraemia [Unknown]
  - Cardiac failure chronic [Unknown]
  - Skin ulcer [Recovered/Resolved with Sequelae]
  - Hypotonia [Unknown]
  - Anaemia [Unknown]
  - Dry eye [Unknown]

NARRATIVE: CASE EVENT DATE: 201603
